FAERS Safety Report 24984873 (Version 1)
Quarter: 2025Q1

REPORT INFORMATION
  Report Type: Other
  Country: FR (occurrence: FR)
  Receive Date: 20250219
  Receipt Date: 20250219
  Transmission Date: 20250409
  Serious: Yes (Life-Threatening, Hospitalization, Other)
  Sender: DEXCEL
  Company Number: FR-DEXPHARM-2025-0985

PATIENT
  Age: 16 Year
  Sex: Female

DRUGS (5)
  1. VENLAFAXINE [Interacting]
     Active Substance: VENLAFAXINE HYDROCHLORIDE
  2. CITALOPRAM [Interacting]
     Active Substance: CITALOPRAM
  3. PAROXETINE [Interacting]
     Active Substance: PAROXETINE
  4. SERTRALINE [Interacting]
     Active Substance: SERTRALINE HYDROCHLORIDE
  5. TRIHEXYPHENIDYL [Interacting]
     Active Substance: TRIHEXYPHENIDYL

REACTIONS (5)
  - Toxicity to various agents [Recovered/Resolved]
  - Confusional state [Recovered/Resolved]
  - Hallucination [Recovered/Resolved]
  - Sinus tachycardia [Recovered/Resolved]
  - Drug interaction [Recovered/Resolved]
